FAERS Safety Report 8384725-1 (Version None)
Quarter: 2012Q2

REPORT INFORMATION
  Report Type: 
  Country: None (occurrence: None)
  Receive Date: 20120524
  Receipt Date: 20120515
  Transmission Date: 20120825
  Serious: Yes (Hospitalization)
  Sender: FDA-Public Use
  Company Number: BR-BAXTER-2012BAX004901

PATIENT
  Sex: Male
  Weight: 59 kg

DRUGS (3)
  1. DIANEAL PD-2 W/ DEXTROSE 1.5% [Suspect]
     Indication: PERITONEAL DIALYSIS
     Route: 033
  2. DIANEAL PD-2 W/ DEXTROSE 1.5% [Suspect]
     Route: 033
  3. DIANEAL PD-2 W/ DEXTROSE 1.5% [Suspect]
     Route: 033

REACTIONS (4)
  - DYSPNOEA [None]
  - MUSCLE SPASMS [None]
  - VOMITING [None]
  - DIZZINESS [None]
